FAERS Safety Report 6151662-2 (Version None)
Quarter: 2009Q2

REPORT INFORMATION
  Report Type: 
  Country: None (occurrence: None)
  Receive Date: 20090410
  Receipt Date: 20090403
  Transmission Date: 20091009
  Serious: Yes (Hospitalization)
  Sender: FDA-Public Use
  Company Number: JP-PFIZER INC-2009194770

PATIENT

DRUGS (6)
  1. SUNITINIB MALATE [Suspect]
     Indication: RENAL CELL CARCINOMA
     Dosage: 37.5 MG, 1X/DAY (TDD37.5MG)
     Route: 048
     Dates: start: 20081010
  2. ADALAT [Concomitant]
     Dosage: UNK
     Route: 048
     Dates: start: 20081105
  3. PETROLATUM SALICYLICUM [Concomitant]
     Dosage: UNK
     Route: 062
     Dates: start: 20081107
  4. NERISONA [Concomitant]
     Dosage: UNK
     Route: 062
     Dates: start: 20081107
  5. PURSENNID [Concomitant]
     Dosage: UNK
     Route: 048
     Dates: start: 20081102
  6. MAG-LAX [Concomitant]
     Dosage: UNK
     Route: 048
     Dates: start: 20081102

REACTIONS (2)
  - GENERALISED OEDEMA [None]
  - STOMATITIS [None]
